FAERS Safety Report 10041440 (Version 3)
Quarter: 2014Q4

REPORT INFORMATION
  Report Type: Report from Study
  Country: BR (occurrence: BR)
  Receive Date: 20140327
  Receipt Date: 20141110
  Transmission Date: 20150528
  Serious: Yes (Other)
  Sender: FDA-Public Use
  Company Number: BR-US-EMD SERONO, INC.-7277430

PATIENT
  Sex: Female

DRUGS (3)
  1. REBIF [Suspect]
     Active Substance: INTERFERON BETA-1A
     Indication: RELAPSING-REMITTING MULTIPLE SCLEROSIS
     Dates: start: 20100301
  2. REBIF [Suspect]
     Active Substance: INTERFERON BETA-1A
  3. ATENOLOL. [Concomitant]
     Active Substance: ATENOLOL
     Indication: PRODUCT USED FOR UNKNOWN INDICATION

REACTIONS (5)
  - Uterine leiomyoma [Unknown]
  - Anaemia [Unknown]
  - Uterine enlargement [Recovering/Resolving]
  - Uterine haemorrhage [Recovering/Resolving]
  - Intentional product misuse [Recovering/Resolving]
